FAERS Safety Report 10161767 (Version 4)
Quarter: 2019Q2

REPORT INFORMATION
  Report Type: Report from Study
  Country: ES (occurrence: ES)
  Receive Date: 20140509
  Receipt Date: 20190402
  Transmission Date: 20190711
  Serious: Yes (Death, Hospitalization)
  Sender: FDA-Public Use
  Company Number: ES-ROCHE-1398067

PATIENT
  Age: 69 Year
  Sex: Male
  Weight: 100 kg

DRUGS (8)
  1. IRINOTECAN [Suspect]
     Active Substance: IRINOTECAN
     Indication: ADENOCARCINOMA OF COLON
     Dosage: LAST DOSE PROIR TO SAE ON 07/APR/2014; NO. OF CYCLES RECEIVED : 04
     Route: 042
     Dates: start: 20140219, end: 20140421
  2. OXALIPLATIN. [Suspect]
     Active Substance: OXALIPLATIN
     Indication: ADENOCARCINOMA OF COLON
     Dosage: LAST DOSE PROIR TO SAE ON 07/APR/2014; NO. OF CYCLES RECEIVED : 04
     Route: 042
     Dates: start: 20140219, end: 20140421
  3. FOLINIC ACID [Suspect]
     Active Substance: LEUCOVORIN
     Indication: ADENOCARCINOMA OF COLON
     Dosage: LAST DOSE PROIR TO SAE ON 07/APR/2014; NO. OF CYCLES RECEIVED : 04
     Route: 042
     Dates: start: 20140219, end: 20140421
  4. SPIRIVA [Concomitant]
     Active Substance: TIOTROPIUM BROMIDE MONOHYDRATE
     Indication: CHRONIC OBSTRUCTIVE PULMONARY DISEASE
     Dosage: 1 INHALATATION PER 24 HOURS
     Route: 065
  5. 5-FLUOROURACIL [Suspect]
     Active Substance: FLUOROURACIL
     Indication: ADENOCARCINOMA OF COLON
     Dosage: LAST DOSE PROIR TO SAE ON 07/APR/2014; NO. OF CYCLES RECEIVED : 04
     Route: 042
     Dates: start: 20140219, end: 20140421
  6. BEVACIZUMAB. [Suspect]
     Active Substance: BEVACIZUMAB
     Indication: ADENOCARCINOMA OF COLON
     Dosage: LAST DOSE PROIR TO SAE ON 07/APR/2014; NO. OF CYCLES RECEIVED : 04
     Route: 042
     Dates: start: 20140219, end: 20140421
  7. SIMVASTATIN. [Concomitant]
     Active Substance: SIMVASTATIN
     Indication: HYPERCHOLESTEROLAEMIA
     Route: 048
  8. OMEPRAZOLE. [Concomitant]
     Active Substance: OMEPRAZOLE
     Indication: GASTROINTESTINAL DISORDER PROPHYLAXIS
     Route: 048

REACTIONS (1)
  - Hypovolaemic shock [Fatal]

NARRATIVE: CASE EVENT DATE: 20140420
